FAERS Safety Report 10014837 (Version 4)
Quarter: 2014Q2

REPORT INFORMATION
  Report Type: Spontaneous
  Country: JP (occurrence: JP)
  Receive Date: 20140317
  Receipt Date: 20140421
  Transmission Date: 20141212
  Serious: Yes (Other)
  Sender: FDA-Public Use
  Company Number: PHHY2014JP031472

PATIENT
  Age: 37 Year
  Sex: Male

DRUGS (6)
  1. GLIVEC [Suspect]
     Indication: BLAST CRISIS IN MYELOGENOUS LEUKAEMIA
     Dosage: 400 MG, DAILY
     Route: 048
     Dates: start: 2007
  2. GLIVEC [Suspect]
     Dosage: 300 MG, DAILY
     Route: 048
  3. GLIVEC [Suspect]
     Dosage: 200 MG, DAILY
     Route: 048
  4. DASATINIB [Suspect]
     Indication: CHRONIC MYELOID LEUKAEMIA
     Dosage: 70 MG, DAILY
  5. DASATINIB [Suspect]
     Dosage: 50 MG, DAILY
  6. ONCOVIN [Suspect]
     Indication: BLAST CRISIS IN MYELOGENOUS LEUKAEMIA

REACTIONS (7)
  - Chronic graft versus host disease in skin [Not Recovered/Not Resolved]
  - Gastrointestinal haemorrhage [Unknown]
  - Pancreatitis [Recovered/Resolved]
  - Intestinal obstruction [Unknown]
  - Pancytopenia [Recovered/Resolved]
  - Enteritis infectious [Recovered/Resolved]
  - Drug ineffective [Unknown]
